FAERS Safety Report 22079730 (Version 6)
Quarter: 2025Q4

REPORT INFORMATION
  Report Type: Spontaneous
  Country: US (occurrence: US)
  Receive Date: 20230309
  Receipt Date: 20251024
  Transmission Date: 20260117
  Serious: No
  Sender: PFIZER
  Company Number: US-PFIZER INC-202200255556

PATIENT
  Age: 80 Year
  Sex: Female
  Weight: 54 kg

DRUGS (3)
  1. INLYTA [Suspect]
     Active Substance: AXITINIB
     Indication: Metastases to lung
     Dosage: 3 MG, 2X/DAY (TAKE 3 TABLETS (3MG) BY MOUTH TWICE DAILY)
     Route: 048
     Dates: start: 20200617
  2. INLYTA [Suspect]
     Active Substance: AXITINIB
     Indication: Clear cell renal cell carcinoma
     Dosage: 2 MG, 2X/DAY (TAKE 2 TABLETS (2 MG) BY MOUTH TWICE DAILY)
     Route: 048
  3. INLYTA [Suspect]
     Active Substance: AXITINIB
     Indication: Renal cancer
     Dosage: 2 MG 2X/DAY(1MG TABLETS; TAKE 2 TABLETS

REACTIONS (4)
  - Secondary hypertension [Unknown]
  - Gastrooesophageal reflux disease [Unknown]
  - Dysphonia [Unknown]
  - Product prescribing error [Unknown]
